FAERS Safety Report 12221184 (Version 1)
Quarter: 2016Q1

REPORT INFORMATION
  Report Type: Spontaneous
  Country: JP (occurrence: JP)
  Receive Date: 20160330
  Receipt Date: 20160330
  Transmission Date: 20160526
  Serious: Yes (Death, Disabling)
  Sender: FDA-Public Use
  Company Number: JP-ASTELLAS-2015JP025243AA

PATIENT
  Age: 79 Year
  Sex: Male

DRUGS (1)
  1. XTANDI [Suspect]
     Active Substance: ENZALUTAMIDE
     Indication: PROSTATE CANCER
     Route: 048
     Dates: start: 20151210, end: 20151212

REACTIONS (2)
  - Decreased appetite [Fatal]
  - Fatigue [Fatal]

NARRATIVE: CASE EVENT DATE: 20151211
